FAERS Safety Report 24993050 (Version 2)
Quarter: 2025Q1

REPORT INFORMATION
  Report Type: Spontaneous
  Country: US (occurrence: US)
  Receive Date: 20250221
  Receipt Date: 20250305
  Transmission Date: 20250409
  Serious: Yes (Hospitalization, Other)
  Sender: MITSUBISHI TANABE PHARMA
  Company Number: US-MTPC-MTPA2025-0003462

PATIENT
  Sex: Male

DRUGS (1)
  1. RADICAVA [Suspect]
     Active Substance: EDARAVONE
     Indication: Amyotrophic lateral sclerosis
     Route: 042

REACTIONS (6)
  - Dysarthria [Unknown]
  - Choking [Unknown]
  - Fall [Unknown]
  - Feeling abnormal [Unknown]
  - Dysphagia [Unknown]
  - Gait disturbance [Unknown]
